FAERS Safety Report 5127531-3 (Version None)
Quarter: 2006Q4

REPORT INFORMATION
  Report Type: 
  Country: None (occurrence: None)
  Receive Date: 20061016
  Receipt Date: 20061003
  Transmission Date: 20070319
  Serious: Yes (Life-Threatening, Hospitalization)
  Sender: FDA-Public Use
  Company Number: NSADSS2002016435

PATIENT
  Sex: Male
  Weight: 120 kg

DRUGS (11)
  1. REMICADE [Suspect]
     Route: 041
     Dates: start: 20010124
  2. REMICADE [Suspect]
     Indication: PSORIATIC ARTHROPATHY
     Route: 041
     Dates: start: 20010124
  3. METHOTREXATE [Suspect]
     Indication: PSORIATIC ARTHROPATHY
     Route: 048
     Dates: start: 19960101
  4. PREDNISONE TAB [Suspect]
     Route: 048
  5. PREDNISONE TAB [Suspect]
     Indication: PSORIATIC ARTHROPATHY
     Route: 048
  6. INACID [Concomitant]
     Indication: DRUG USE FOR UNKNOWN INDICATION
     Dates: start: 19970101
  7. ACFOL [Concomitant]
     Indication: DRUG USE FOR UNKNOWN INDICATION
     Dates: start: 19980101
  8. DIGOXIN [Concomitant]
     Indication: ATRIAL FIBRILLATION
  9. BECOZYME [Concomitant]
     Indication: DRUG USE FOR UNKNOWN INDICATION
  10. RENITEC [Concomitant]
     Indication: DRUG USE FOR UNKNOWN INDICATION
  11. SINTROM [Concomitant]
     Indication: ATRIAL FIBRILLATION

REACTIONS (21)
  - AGITATION [None]
  - AORTIC VALVE INCOMPETENCE [None]
  - ARRHYTHMIA [None]
  - ATRIAL FIBRILLATION [None]
  - BLOOD PH INCREASED [None]
  - BLOOD PRESSURE INCREASED [None]
  - BRONCHIECTASIS [None]
  - BUNDLE BRANCH BLOCK RIGHT [None]
  - CARDIAC VALVE DISEASE [None]
  - CARDIOMEGALY [None]
  - CEREBROVASCULAR DISORDER [None]
  - CHRONIC OBSTRUCTIVE PULMONARY DISEASE [None]
  - CONDITION AGGRAVATED [None]
  - HEPATIC CYST [None]
  - HEPATIC STEATOSIS [None]
  - HEPATOSPLENOMEGALY [None]
  - LISTERIA ENCEPHALITIS [None]
  - MENINGITIS LISTERIA [None]
  - MITRAL VALVE INCOMPETENCE [None]
  - PROTHROMBIN TIME PROLONGED [None]
  - VASCULAR CALCIFICATION [None]
